FAERS Safety Report 5054789-1 (Version None)
Quarter: 2006Q2

REPORT INFORMATION
  Report Type: 
  Country: None (occurrence: None)
  Receive Date: 20060614
  Receipt Date: 20060405
  Transmission Date: 20061013
  Serious: No
  Sender: FDA-Public Use
  Company Number: US200604000989

PATIENT
  Sex: Male

DRUGS (4)
  1. CIALIS [Suspect]
     Indication: ERECTILE DYSFUNCTION
     Dosage: 10 MG
     Dates: start: 20060101
  2. LIPITOR [Concomitant]
  3. FOSINOPRIL SODIUM [Concomitant]
  4. ALBUTEROL [Concomitant]

REACTIONS (1)
  - HEADACHE [None]
